FAERS Safety Report 8814129 (Version 1)
Quarter: 2012Q4

REPORT INFORMATION
  Report Type: Spontaneous
  Country: US (occurrence: None)
  Receive Date: 20120926
  Receipt Date: 20120926
  Transmission Date: 20130627
  Serious: No
  Sender: FDA-Public Use
  Company Number: None

PATIENT
  Sex: Female

DRUGS (1)
  1. METHYLPHENIDATE ER [Suspect]
     Dosage: take 1 capsule daily

REACTIONS (3)
  - Tachycardia [None]
  - Product substitution issue [None]
  - Feeling abnormal [None]
